FAERS Safety Report 7634445-3 (Version None)
Quarter: 2011Q3

REPORT INFORMATION
  Report Type: 
  Country: None (occurrence: None)
  Receive Date: 20110725
  Receipt Date: 20110715
  Transmission Date: 20111222
  Serious: Yes (Hospitalization)
  Sender: FDA-Public Use
  Company Number: PHHY2011JP61525

PATIENT
  Age: 72 Year
  Sex: Female
  Weight: 65 kg

DRUGS (5)
  1. FEMARA [Suspect]
     Indication: BREAST CANCER
     Dosage: 2.5 MG, DAILY
     Route: 048
     Dates: start: 20061101, end: 20110705
  2. METHYCOBAL [Concomitant]
     Indication: HYPOAESTHESIA
     Dosage: 3 DF, UNK
     Route: 048
     Dates: start: 20070301
  3. MAGMITT KENEI [Concomitant]
     Indication: CONSTIPATION
     Dosage: 3 DF, UNK
     Route: 048
     Dates: start: 20070401
  4. ACTONEL [Concomitant]
     Dosage: 1 DF, UNK
     Route: 048
     Dates: start: 20081201
  5. DEPAS [Concomitant]
     Indication: INSOMNIA
     Dosage: 1 DF, UNK
     Route: 048
     Dates: start: 20090401

REACTIONS (4)
  - DEEP VEIN THROMBOSIS [None]
  - ILIAC ARTERY STENOSIS [None]
  - PAIN IN EXTREMITY [None]
  - ARTERIOSCLEROSIS OBLITERANS [None]
